FAERS Safety Report 5336204-3 (Version None)
Quarter: 2007Q2

REPORT INFORMATION
  Report Type: 
  Country: None (occurrence: None)
  Receive Date: 20070315
  Receipt Date: 20070116
  Transmission Date: 20071010
  Serious: No
  Sender: FDA-Public Use
  Company Number: BDI-009036

PATIENT
  Age: 24 Year
  Sex: Female

DRUGS (2)
  1. MULTIHANCE [Suspect]
     Indication: HEADACHE
     Dosage: 13 ML ONCE IV
     Route: 042
     Dates: start: 20070116, end: 20070116
  2. MULTIHANCE [Suspect]
     Indication: NUCLEAR MAGNETIC RESONANCE IMAGING BRAIN
     Dosage: 13 ML ONCE IV
     Route: 042
     Dates: start: 20070116, end: 20070116

REACTIONS (2)
  - NAUSEA [None]
  - VOMITING [None]
